FAERS Safety Report 7644011-1 (Version None)
Quarter: 2011Q3

REPORT INFORMATION
  Report Type: 
  Country: None (occurrence: None)
  Receive Date: 20110729
  Receipt Date: 20110722
  Transmission Date: 20111222
  Serious: Yes (Other)
  Sender: FDA-Public Use
  Company Number: HU-PFIZER INC-2011169483

PATIENT

DRUGS (2)
  1. SUTENT [Suspect]
     Indication: METASTATIC RENAL CELL CARCINOMA
     Dosage: UNK
     Dates: start: 20100315
  2. ZOLEDRONIC ACID [Concomitant]
     Dosage: UNK
     Route: 042
     Dates: start: 20100305, end: 20110623

REACTIONS (1)
  - OSTEONECROSIS [None]
